FAERS Safety Report 4871952-0 (Version None)
Quarter: 2005Q4

REPORT INFORMATION
  Report Type: 
  Country: None (occurrence: None)
  Receive Date: 20051230
  Receipt Date: 20051219
  Transmission Date: 20060501
  Serious: Yes (Hospitalization, Other)
  Sender: FDA-Public Use
  Company Number: 2005170679

PATIENT
  Age: 84 Year
  Sex: Female

DRUGS (13)
  1. NORVASC [Suspect]
     Indication: HYPERTENSION
     Dosage: 10 MG (DAILY), ORAL   BEFORE 2001
     Route: 048
  2. SYMMETREL [Concomitant]
  3. ALLOPURINOL [Concomitant]
  4. GLAKAY (MEMATETRENONE) [Concomitant]
  5. GNATON (ITOPRIDE HYDROCHLORIDE) [Concomitant]
  6. BONALON (ALENDRONATE SODIUM) [Concomitant]
  7. LIPITOR [Concomitant]
  8. FAMOTIDINE [Concomitant]
  9. CELTECT (OXATOMIDE) [Concomitant]
  10. BERIZYM (ENZYMES NOS) [Concomitant]
  11. BESACOLIN (BETHANECHOL CHLORIDE) [Concomitant]
  12. ERBANTIL (URAPIDIL) [Concomitant]
  13. PANSPORIN T (CEFOTIAM HEXETIL HYDROCHLORIDE) [Concomitant]

REACTIONS (2)
  - BACK PAIN [None]
  - URINARY RETENTION [None]
